FAERS Safety Report 5942903-2 (Version None)
Quarter: 2008Q4

REPORT INFORMATION
  Report Type: 
  Country: None (occurrence: None)
  Receive Date: 20081103
  Receipt Date: 20081020
  Transmission Date: 20090506
  Serious: Yes (Hospitalization)
  Sender: FDA-Public Use
  Company Number: 236601K06USA

PATIENT
  Age: 40 Year
  Sex: Female

DRUGS (4)
  1. REBIF [Suspect]
     Indication: MULTIPLE SCLEROSIS
     Dosage: 44 MCG, 3 IN 1 WEEKS, SUBCUTANEOUS
     Route: 058
     Dates: start: 20080505, end: 20081007
  2. DIAZEPAM [Suspect]
     Indication: DIZZINESS
  3. PROZAC [Suspect]
     Indication: DEPRESSION
     Dates: start: 20060101, end: 20060101
  4. TOPAMAX [Suspect]
     Indication: DIZZINESS

REACTIONS (6)
  - DEPRESSION [None]
  - DIZZINESS [None]
  - INCORRECT DOSE ADMINISTERED [None]
  - INTENTIONAL SELF-INJURY [None]
  - LOSS OF CONSCIOUSNESS [None]
  - SUICIDE ATTEMPT [None]
